FAERS Safety Report 6990656-1 (Version None)
Quarter: 2010Q3

REPORT INFORMATION
  Report Type: 
  Country: None (occurrence: None)
  Receive Date: 20100916
  Receipt Date: 20090108
  Transmission Date: 20110219
  Serious: Yes (Other)
  Sender: FDA-Public Use
  Company Number: HQWYE394122OCT03

PATIENT
  Sex: Female

DRUGS (1)
  1. PREMARIN [Suspect]
     Dosage: UNSPECIFIED DOSAGE, DAILY FOR A NUMBER OF YEARS
     Route: 048

REACTIONS (3)
  - BREAST CANCER [None]
  - BREAST NEOPLASM [None]
  - OVARIAN CANCER METASTATIC [None]
